FAERS Safety Report 7307390-0 (Version None)
Quarter: 2011Q1

REPORT INFORMATION
  Report Type: 
  Country: None (occurrence: None)
  Receive Date: 20110223
  Receipt Date: 20110217
  Transmission Date: 20110831
  Serious: Yes (Death)
  Sender: FDA-Public Use
  Company Number: PHHY2010DE68384

PATIENT
  Sex: Female
  Weight: 80 kg

DRUGS (2)
  1. PROTHYRID [Concomitant]
     Dosage: UNK
     Dates: start: 19890601
  2. CGS 20267 [Suspect]
     Indication: BREAST CANCER
     Dosage: 2.5 MG, DAILY
     Route: 048
     Dates: start: 20090320

REACTIONS (5)
  - GENERAL PHYSICAL HEALTH DETERIORATION [None]
  - METASTASES TO LIVER [None]
  - EMBOLISM ARTERIAL [None]
  - CEREBRAL ISCHAEMIA [None]
  - EPISTAXIS [None]
